FAERS Safety Report 9493600 (Version 1)
Quarter: 2013Q3

REPORT INFORMATION
  Report Type: Spontaneous
  Country: US (occurrence: US)
  Receive Date: 20130902
  Receipt Date: 20130902
  Transmission Date: 20140515
  Serious: No
  Sender: FDA-Public Use
  Company Number: US-009507513-1308USA015319

PATIENT
  Age: 4 Year
  Sex: Male
  Weight: 19.48 kg

DRUGS (1)
  1. CLARITIN ORAL SOLUTION [Suspect]
     Indication: SEASONAL ALLERGY
     Dosage: 3.75 MG, QD
     Route: 048
     Dates: start: 20130826

REACTIONS (1)
  - Accidental overdose [Unknown]
